FAERS Safety Report 23181967 (Version 2)
Quarter: 2023Q4

REPORT INFORMATION
  Report Type: Report from Study
  Country: GB (occurrence: GB)
  Receive Date: 20231114
  Receipt Date: 20231215
  Transmission Date: 20240110
  Serious: Yes (Hospitalization, Other)
  Sender: FDA-Public Use
  Company Number: GB-002147023-NVSC2023GB238020

PATIENT
  Sex: Male

DRUGS (1)
  1. MAYZENT [Suspect]
     Active Substance: SIPONIMOD
     Indication: Multiple sclerosis
     Dosage: UNK, QD
     Route: 048
     Dates: start: 20230203

REACTIONS (8)
  - Sepsis [Unknown]
  - COVID-19 [Unknown]
  - Kidney infection [Unknown]
  - Urinary tract infection [Unknown]
  - Fall [Unknown]
  - Impaired healing [Unknown]
  - Product dose omission issue [Unknown]
  - Drug ineffective [Unknown]
